FAERS Safety Report 6183811-4 (Version None)
Quarter: 2009Q2

REPORT INFORMATION
  Report Type: 
  Country: None (occurrence: None)
  Receive Date: 20090508
  Receipt Date: 20090427
  Transmission Date: 20091009
  Serious: Yes (Other)
  Sender: FDA-Public Use
  Company Number: ES-ROCHE-619303

PATIENT
  Age: 28 Year
  Sex: Female

DRUGS (2)
  1. PEGASYS [Suspect]
     Route: 058
     Dates: start: 20080111, end: 20080823
  2. COPEGUS [Suspect]
     Route: 048
     Dates: start: 20080111, end: 20080823

REACTIONS (1)
  - MYOPATHY [None]
